FAERS Safety Report 12428662 (Version 1)
Quarter: 2016Q2

REPORT INFORMATION
  Report Type: Spontaneous
  Country: US (occurrence: None)
  Receive Date: 20160601
  Receipt Date: 20160601
  Transmission Date: 20160815
  Serious: Yes (Death, Life-Threatening)
  Sender: FDA-Public Use
  Company Number: None

PATIENT
  Age: 54 Year
  Sex: Male
  Weight: 96 kg

DRUGS (1)
  1. RIVAROXABAN, 20 MG [Suspect]
     Active Substance: RIVAROXABAN
     Indication: ATRIAL FIBRILLATION
     Route: 048
     Dates: start: 20160507, end: 20160508

REACTIONS (10)
  - Cough [None]
  - Respiratory tract haemorrhage [None]
  - Cardio-respiratory arrest [None]
  - Seizure [None]
  - Epistaxis [None]
  - Procedural complication [None]
  - Haemorrhage [None]
  - Bronchial haemorrhage [None]
  - Syncope [None]
  - Vomiting [None]

NARRATIVE: CASE EVENT DATE: 20160508
